FAERS Safety Report 20673178 (Version 9)
Quarter: 2023Q1

REPORT INFORMATION
  Report Type: Spontaneous
  Country: DE (occurrence: DE)
  Receive Date: 20220405
  Receipt Date: 20230329
  Transmission Date: 20230417
  Serious: Yes (Death, Life-Threatening, Hospitalization, Other)
  Sender: FDA-Public Use
  Company Number: DE-NOVARTISPH-NVSC2022DE076099

PATIENT
  Age: 62 Year
  Sex: Male
  Weight: 79 kg

DRUGS (9)
  1. DOCETAXEL [Suspect]
     Active Substance: DOCETAXEL
     Indication: Lung adenocarcinoma
     Dosage: 75 MG/M2, QD (FORMULATION: LIQUID)
     Route: 042
     Dates: start: 20211215, end: 20220316
  2. NINTEDANIB [Suspect]
     Active Substance: NINTEDANIB
     Indication: Lung adenocarcinoma
     Dosage: 100 MG, Q12H
     Route: 048
     Dates: start: 20211216, end: 20220323
  3. MORPHINE [Concomitant]
     Active Substance: MORPHINE
     Indication: Dyspnoea
     Dosage: 3 MG, PRN
     Route: 042
     Dates: start: 20220323
  4. ACTRAPID [Concomitant]
     Active Substance: INSULIN HUMAN
     Indication: Diabetes mellitus
     Dosage: 300 IU, PRN
     Route: 058
     Dates: start: 202102
  5. METFORMIN [Concomitant]
     Active Substance: METFORMIN HYDROCHLORIDE
     Indication: Diabetes mellitus
     Dosage: UNK, Q12H (0.5-0-0.5)
     Route: 048
     Dates: start: 20161008, end: 20220323
  6. ASPIRIN [Concomitant]
     Active Substance: ASPIRIN
     Indication: Coronary artery disease
     Dosage: 1000 MG, QD (0-1-0)
     Route: 048
     Dates: start: 20161008, end: 20220324
  7. AMLODIPINE BESYLATE [Concomitant]
     Active Substance: AMLODIPINE BESYLATE
     Indication: Hypertension
     Dosage: 5 MG, QD (1-0-0)
     Route: 048
     Dates: start: 2021, end: 20220324
  8. DIETARY SUPPLEMENT [Concomitant]
     Active Substance: DIETARY SUPPLEMENT
     Indication: Enteral nutrition
     Dosage: UNK, PRN {AS NECESSARY}
     Route: 065
     Dates: start: 202201
  9. AMINO ACIDS\DEXTROSE\ELECTROLYTES NOS [Concomitant]
     Active Substance: AMINO ACIDS\DEXTROSE\ELECTROLYTES NOS
     Indication: Parenteral nutrition
     Dosage: 1000 ML, QD
     Route: 042
     Dates: start: 20220323

REACTIONS (9)
  - Pneumonitis [Fatal]
  - Cytopenia [Not Recovered/Not Resolved]
  - Hyponatraemia [Recovered/Resolved]
  - Pancytopenia [Unknown]
  - Pancytopenia [Not Recovered/Not Resolved]
  - Oesophagitis [Not Recovered/Not Resolved]
  - Diarrhoea [Not Recovered/Not Resolved]
  - Anaemia [Not Recovered/Not Resolved]
  - Anaemia [Not Recovered/Not Resolved]

NARRATIVE: CASE EVENT DATE: 20220105
